FAERS Safety Report 10556615 (Version 2)
Quarter: 2015Q1

REPORT INFORMATION
  Report Type: Report from Study
  Country: NL (occurrence: NL)
  Receive Date: 20141031
  Receipt Date: 20150102
  Transmission Date: 20150720
  Serious: Yes (Other)
  Sender: FDA-Public Use
  Company Number: PHHY2014NL138421

PATIENT
  Sex: Female

DRUGS (1)
  1. SANDOSTATIN LAR DEPOT [Suspect]
     Active Substance: OCTREOTIDE ACETATE
     Indication: NEUROENDOCRINE TUMOUR
     Dosage: 20 MG/ 2 ML, ONCE EVERY 4 WEEKS 2 PCS
     Route: 030
     Dates: end: 20140926

REACTIONS (2)
  - Malignant neoplasm progression [Unknown]
  - Terminal state [Unknown]
